FAERS Safety Report 10289294 (Version 1)
Quarter: 2014Q3

REPORT INFORMATION
  Report Type: Spontaneous
  Country: ZA (occurrence: ZA)
  Receive Date: 20140710
  Receipt Date: 20140710
  Transmission Date: 20150326
  Serious: Yes (Hospitalization)
  Sender: FDA-Public Use
  Company Number: ZA-009507513-1407ZAF002818

PATIENT
  Age: 81 Year
  Sex: Female

DRUGS (3)
  1. DISPRIN [Suspect]
     Active Substance: ASPIRIN
     Dosage: UNK
     Dates: start: 2010
  2. ELTROXIN [Suspect]
     Active Substance: LEVOTHYROXINE
  3. COZAAR [Suspect]
     Active Substance: LOSARTAN POTASSIUM
     Route: 048

REACTIONS (7)
  - Urinary tract infection [Unknown]
  - Haematochezia [Recovered/Resolved]
  - Urinary retention [Unknown]
  - Limb asymmetry [Unknown]
  - Arthralgia [Unknown]
  - Back pain [Unknown]
  - Gastric haemorrhage [Recovered/Resolved]

NARRATIVE: CASE EVENT DATE: 201403
